FAERS Safety Report 15541551 (Version 1)
Quarter: 2018Q4

REPORT INFORMATION
  Report Type: Spontaneous
  Country: US (occurrence: US)
  Receive Date: 20181017
  Receipt Date: 20181017
  Transmission Date: 20190205
  Serious: No
  Sender: FDA-Public Use
  Company Number: None

PATIENT
  Age: 70 Year
  Sex: Male

DRUGS (1)
  1. HYDROCHLOROTHIAZIDE/TRIAMTERENE [Suspect]
     Active Substance: HYDROCHLOROTHIAZIDE\TRIAMTERENE
     Route: 048
     Dates: start: 20180930, end: 20181012

REACTIONS (7)
  - Palpitations [None]
  - Malaise [None]
  - Chills [None]
  - Asthenia [None]
  - Cold sweat [None]
  - Product substitution issue [None]
  - Feeling abnormal [None]

NARRATIVE: CASE EVENT DATE: 20180930
